FAERS Safety Report 19603448 (Version 2)
Quarter: 2022Q2

REPORT INFORMATION
  Report Type: Report from Study
  Country: CA (occurrence: None)
  Receive Date: 20210723
  Receipt Date: 20220617
  Transmission Date: 20220721
  Serious: Yes (Other)
  Sender: FDA-Public Use
  Company Number: CA-PFIZER INC-2021894423

PATIENT
  Age: 52 Year
  Sex: Female

DRUGS (13)
  1. METHOTREXATE [Suspect]
     Active Substance: METHOTREXATE
     Indication: Product used for unknown indication
     Route: 048
  2. METHOTREXATE [Suspect]
     Active Substance: METHOTREXATE
     Route: 058
  3. COLCHICINE [Suspect]
     Active Substance: COLCHICINE
     Indication: Product used for unknown indication
     Route: 048
  4. DICLOFENAC [Suspect]
     Active Substance: DICLOFENAC
     Indication: Product used for unknown indication
     Route: 048
  5. ERELZI [Suspect]
     Active Substance: ETANERCEPT-SZZS
     Indication: Ankylosing spondylitis
     Route: 058
  6. LEFLUNOMIDE [Suspect]
     Active Substance: LEFLUNOMIDE
     Indication: Product used for unknown indication
     Route: 065
  7. ARAVA [Concomitant]
     Active Substance: LEFLUNOMIDE
     Route: 048
  8. DESOXIMETASONE [Concomitant]
     Active Substance: DESOXIMETASONE
     Route: 058
  9. INDOMETHACIN [Concomitant]
     Active Substance: INDOMETHACIN
     Route: 065
  10. NAPROXEN [Concomitant]
     Active Substance: NAPROXEN
     Route: 065
  11. PREDNISONE [Concomitant]
     Active Substance: PREDNISONE
     Route: 048
  12. VIOXX [Concomitant]
     Active Substance: ROFECOXIB
     Route: 065
  13. GOLD [Concomitant]
     Active Substance: GOLD
     Route: 030

REACTIONS (7)
  - Drug ineffective [Unknown]
  - Episcleritis [Unknown]
  - Uveitis [Unknown]
  - C-reactive protein abnormal [Unknown]
  - Crohn^s disease [Unknown]
  - Drug intolerance [Unknown]
  - Product use issue [Unknown]
